FAERS Safety Report 7974528-1 (Version None)
Quarter: 2011Q4

REPORT INFORMATION
  Report Type: 
  Country: None (occurrence: None)
  Receive Date: 20111213
  Receipt Date: 20111128
  Transmission Date: 20120403
  Serious: Yes (Other)
  Sender: FDA-Public Use
  Company Number: FR-JNJFOC-20110605592

PATIENT
  Sex: Male
  Weight: 20.1 kg

DRUGS (1)
  1. NIZORAL [Suspect]
     Indication: TESTOTOXICOSIS
     Route: 048
     Dates: start: 20090101

REACTIONS (3)
  - ADRENAL INSUFFICIENCY [None]
  - OFF LABEL USE [None]
  - THERAPEUTIC RESPONSE UNEXPECTED [None]
